FAERS Safety Report 7546221-0 (Version None)
Quarter: 2011Q2

REPORT INFORMATION
  Report Type: 
  Country: None (occurrence: None)
  Receive Date: 20110614
  Receipt Date: 20110606
  Transmission Date: 20111010
  Serious: Yes (Life-Threatening, Hospitalization, Other)
  Sender: FDA-Public Use
  Company Number: ES-PFIZER INC-2011127110

PATIENT
  Age: 74 Year
  Sex: Male

DRUGS (6)
  1. LOBIVON [Suspect]
     Indication: HYPERTENSION
     Dosage: 2.5 MG/DAILY, UNK
     Route: 048
     Dates: start: 20070101, end: 20110113
  2. SINTROM [Concomitant]
     Dosage: UNK
     Dates: start: 20070101
  3. TRIAZOLAM [Concomitant]
     Dosage: UNK
     Dates: start: 20080101
  4. AMIODARONE HCL [Suspect]
     Indication: ATRIAL FIBRILLATION
     Dosage: 200 MG/DAILY
     Route: 048
     Dates: start: 20070101, end: 20110113
  5. EPROSARTAN MESYLATE [Suspect]
     Indication: HYPERTENSION
     Dosage: 1 DF/DAILY, UNK
     Route: 048
     Dates: start: 20080101, end: 20110113
  6. BUDESONIDE/FORMOTEROL FUMARATE [Concomitant]
     Dosage: UNK
     Dates: start: 20070101

REACTIONS (4)
  - CARDIO-RESPIRATORY ARREST [None]
  - RENAL FAILURE ACUTE [None]
  - HYPERKALAEMIA [None]
  - DRUG INTERACTION [None]
